FAERS Safety Report 24932394 (Version 1)
Quarter: 2025Q1

REPORT INFORMATION
  Report Type: Report from Study
  Country: US (occurrence: US)
  Receive Date: 20250205
  Receipt Date: 20250205
  Transmission Date: 20250409
  Serious: No
  Sender: EXELIXIS
  Company Number: US-EXELIXIS-CABO-24080521

PATIENT
  Age: 78 Year
  Sex: Female
  Weight: 66.667 kg

DRUGS (15)
  1. CABOMETYX [Suspect]
     Active Substance: CABOZANTINIB S-MALATE
     Indication: Renal cancer
     Dosage: 60 MG, QD
     Route: 048
     Dates: start: 20240729
  2. CABOMETYX [Suspect]
     Active Substance: CABOZANTINIB S-MALATE
     Dosage: 40 MG, QD
     Route: 048
     Dates: end: 20241008
  3. CABOMETYX [Suspect]
     Active Substance: CABOZANTINIB S-MALATE
     Dosage: 40 MG, QD
     Route: 048
     Dates: start: 202410
  4. AMLODIPINE [Concomitant]
     Active Substance: AMLODIPINE BESYLATE
  5. LEVOTHYROXINE [Concomitant]
     Active Substance: LEVOTHYROXINE
  6. KEYTRUDA [Concomitant]
     Active Substance: PEMBROLIZUMAB
  7. ONDANSETRON [Concomitant]
     Active Substance: ONDANSETRON
  8. LISINOPRIL [Concomitant]
     Active Substance: LISINOPRIL
  9. HYDROCHLOROTHIAZIDE [Concomitant]
     Active Substance: HYDROCHLOROTHIAZIDE
  10. SYNTHROID [Concomitant]
     Active Substance: LEVOTHYROXINE SODIUM
  11. FISH OIL [Concomitant]
     Active Substance: FISH OIL
  12. LUTEIN [Concomitant]
     Active Substance: LUTEIN
  13. CINNAMON [Concomitant]
     Active Substance: CINNAMON
  14. SIMVASTATIN [Concomitant]
     Active Substance: SIMVASTATIN
  15. VITAMINS [Concomitant]
     Active Substance: VITAMINS

REACTIONS (11)
  - Glossodynia [Unknown]
  - Constipation [Recovering/Resolving]
  - Blood pressure increased [Unknown]
  - Nausea [Recovering/Resolving]
  - Fatigue [Unknown]
  - Weight decreased [Unknown]
  - Dysphonia [Not Recovered/Not Resolved]
  - Abdominal pain upper [Recovered/Resolved]
  - Ageusia [Unknown]
  - Adverse drug reaction [Unknown]
  - Product dose omission issue [Unknown]

NARRATIVE: CASE EVENT DATE: 20240731
